FAERS Safety Report 20474177 (Version 9)
Quarter: 2024Q3

REPORT INFORMATION
  Report Type: Report from Study
  Country: CA (occurrence: CA)
  Receive Date: 20220215
  Receipt Date: 20240705
  Transmission Date: 20241017
  Serious: Yes (Other)
  Sender: JOHNSON AND JOHNSON
  Company Number: CA-JNJFOC-20220228318

PATIENT
  Age: 73 Year
  Sex: Male
  Weight: 77 kg

DRUGS (2)
  1. REMICADE [Suspect]
     Active Substance: INFLIXIMAB
     Indication: Colitis ulcerative
     Dosage: RECEIVED INFUSION ON 17/APR/2014 AND 07-MAY-2023 AND ON 18-APR-2023
     Route: 041
     Dates: start: 20140414
  2. REMICADE [Suspect]
     Active Substance: INFLIXIMAB
     Dosage: RECEIVED INFUSION ON 17/APR/2014 AND 07-MAY-2023 AND ON 18-APR-2023
     Route: 041
     Dates: start: 20140414

REACTIONS (5)
  - Bladder cancer [Unknown]
  - Transfusion [Unknown]
  - Colon cancer [Unknown]
  - Colitis ulcerative [Not Recovered/Not Resolved]
  - Urinary tract infection [Recovered/Resolved]

NARRATIVE: CASE EVENT DATE: 20220101
